FAERS Safety Report 8965632 (Version 2)
Quarter: 2013Q3

REPORT INFORMATION
  Report Type: Spontaneous
  Country: GB (occurrence: None)
  Receive Date: 20121205
  Receipt Date: 20130715
  Transmission Date: 20140515
  Serious: Yes (Other)
  Sender: FDA-Public Use
  Company Number: AUR-APL-2012-05197

PATIENT
  Sex: Female

DRUGS (1)
  1. CLARITHROMYCIN (CLARITHROMYCIN) [Suspect]
     Indication: CHEST DISCOMFORT
     Dosage: 500 MG (250 MG, 2 IN 1 D), ORAL
     Route: 048

REACTIONS (3)
  - Syncope [None]
  - Feeling cold [None]
  - Malaise [None]
